FAERS Safety Report 7292340-6 (Version None)
Quarter: 2011Q1

REPORT INFORMATION
  Report Type: 
  Country: None (occurrence: None)
  Receive Date: 20110215
  Receipt Date: 20110201
  Transmission Date: 20110831
  Serious: Yes (Other)
  Sender: FDA-Public Use
  Company Number: ES-CELGENEUS-144-20785-11020231

PATIENT
  Age: 75 Year
  Sex: Male

DRUGS (2)
  1. DEXAMETHASONE [Concomitant]
     Indication: MULTIPLE MYELOMA
     Route: 065
     Dates: start: 20100901, end: 20101101
  2. THALOMID [Suspect]
     Indication: MULTIPLE MYELOMA
     Route: 048
     Dates: start: 20100901, end: 20101101

REACTIONS (5)
  - CARDIAC DISORDER [None]
  - RENAL FAILURE [None]
  - DEEP VEIN THROMBOSIS [None]
  - BONE DISORDER [None]
  - POLYNEUROPATHY [None]
